FAERS Safety Report 15003315 (Version 1)
Quarter: 2018Q2

REPORT INFORMATION
  Report Type: Report from Study
  Country: US (occurrence: US)
  Receive Date: 20180613
  Receipt Date: 20180613
  Transmission Date: 20180711
  Serious: Yes (Hospitalization, Other)
  Sender: FDA-Public Use
  Company Number: US-ALEXION PHARMACEUTICALS INC.-A201807061

PATIENT
  Sex: Male

DRUGS (4)
  1. SOLIRIS [Suspect]
     Active Substance: ECULIZUMAB
     Indication: PAROXYSMAL NOCTURNAL HAEMOGLOBINURIA
     Dosage: UNK
     Route: 042
     Dates: start: 20170313, end: 20170905
  2. VIDAZA [Suspect]
     Active Substance: AZACITIDINE
     Indication: MYELODYSPLASTIC SYNDROME
  3. AMOXICILLIN CLAVULANIC ACID [Concomitant]
     Active Substance: AMOXICILLIN\CLAVULANIC ACID
     Indication: PRODUCT USED FOR UNKNOWN INDICATION
     Dosage: 875/125MG, TID FOR 10 DAYS
     Route: 065
  4. VIDAZA [Suspect]
     Active Substance: AZACITIDINE
     Indication: CHEMOTHERAPY
     Dosage: 1 SESSION/MONTH (1 SESSION = 7 WORKING DAYS)
     Route: 065
     Dates: start: 20180201

REACTIONS (9)
  - Sinusitis [Unknown]
  - Abdominal distension [Unknown]
  - Bone pain [Unknown]
  - Platelet count decreased [Unknown]
  - Myelodysplastic syndrome [Not Recovered/Not Resolved]
  - Speech disorder [Unknown]
  - Paralysis [Unknown]
  - Haemoglobin decreased [Not Recovered/Not Resolved]
  - Memory impairment [Unknown]

NARRATIVE: CASE EVENT DATE: 20171101
